FAERS Safety Report 19478389 (Version 2)
Quarter: 2021Q3

REPORT INFORMATION
  Report Type: Report from Study
  Country: FR (occurrence: FR)
  Receive Date: 20210630
  Receipt Date: 20210706
  Transmission Date: 20211014
  Serious: Yes (Hospitalization, Other)
  Sender: FDA-Public Use
  Company Number: FR-VIIV HEALTHCARE LIMITED-FR2020GSK259182

PATIENT
  Age: 46 Year
  Sex: Male
  Weight: 67 kg

DRUGS (1)
  1. DOLUTEGRAVIR + LAMIVUDINE [Suspect]
     Active Substance: DOLUTEGRAVIR SODIUM\LAMIVUDINE
     Indication: HIV INFECTION
     Dosage: 1 DF, QD (50/300)
     Route: 048
     Dates: start: 20201014

REACTIONS (4)
  - Hodgkin^s disease [Not Recovered/Not Resolved]
  - Lymphadenopathy [Unknown]
  - Diarrhoea [Recovered/Resolved]
  - Subcutaneous biopsy [Unknown]

NARRATIVE: CASE EVENT DATE: 20201015
